FAERS Safety Report 25524542 (Version 3)
Quarter: 2025Q4

REPORT INFORMATION
  Report Type: Report from Study
  Country: US (occurrence: US)
  Receive Date: 20250707
  Receipt Date: 20251229
  Transmission Date: 20260117
  Serious: Yes (Other)
  Sender: SANOFI AVENTIS
  Company Number: US-SA-2025SA189972

PATIENT
  Age: 3 Year
  Sex: Female
  Weight: 17.27 kg

DRUGS (14)
  1. CEREZYME [Suspect]
     Active Substance: IMIGLUCERASE
     Indication: Gaucher^s disease type III
     Dosage: 1200 U, QOW
     Route: 042
     Dates: start: 202205
  2. STERILE WATER [Concomitant]
     Active Substance: WATER
  3. FAMOTIDINE [Concomitant]
     Active Substance: FAMOTIDINE
  4. EPINEPHRINE [Concomitant]
     Active Substance: EPINEPHRINE
  5. SODIUM CHLORIDE [Concomitant]
     Active Substance: SODIUM CHLORIDE
  6. ACETAMINOPHEN [Concomitant]
     Active Substance: ACETAMINOPHEN
  7. HEPARIN [Concomitant]
     Active Substance: HEPARIN SODIUM
  8. SODIUM CHLORIDE [Concomitant]
     Active Substance: SODIUM CHLORIDE
  9. ALOCANE [Concomitant]
     Active Substance: LIDOCAINE HYDROCHLORIDE
  10. FLUBLOK QUADRIVALENT NOS [Concomitant]
     Active Substance: INFLUENZA VIRUS VACCINE
  11. LIDOCAINE [Concomitant]
     Active Substance: LIDOCAINE
  12. DIPHENHYDRAMINE HYDROCHLORIDE [Concomitant]
     Active Substance: DIPHENHYDRAMINE HYDROCHLORIDE
  13. METHYLPREDNISOLONE [Concomitant]
     Active Substance: METHYLPREDNISOLONE
  14. SOLU-MEDROL [Concomitant]
     Active Substance: METHYLPREDNISOLONE SODIUM SUCCINATE
     Dosage: UNK

REACTIONS (8)
  - Occipital lobe epilepsy [Unknown]
  - Blepharospasm [Recovered/Resolved]
  - Vision blurred [Recovered/Resolved]
  - Aphasia [Recovered/Resolved]
  - Myoclonic epilepsy [Unknown]
  - Petit mal epilepsy [Unknown]
  - Glucosylsphingosine abnormal [Unknown]
  - Off label use [Unknown]

NARRATIVE: CASE EVENT DATE: 20220501
